FAERS Safety Report 8046597-4 (Version None)
Quarter: 2012Q1

REPORT INFORMATION
  Report Type: 
  Country: None (occurrence: None)
  Receive Date: 20120113
  Receipt Date: 20120106
  Transmission Date: 20120608
  Serious: Yes (Hospitalization)
  Sender: FDA-Public Use
  Company Number: US-SANOFI-AVENTIS-2012SA001369

PATIENT
  Sex: Male

DRUGS (2)
  1. PLAVIX [Suspect]
     Dates: start: 20090101
  2. ASPIRIN [Concomitant]

REACTIONS (1)
  - PROSTATIC DISORDER [None]
